FAERS Safety Report 18407387 (Version 4)
Quarter: 2020Q4

REPORT INFORMATION
  Report Type: Spontaneous
  Country: IE (occurrence: IE)
  Receive Date: 20201020
  Receipt Date: 20201203
  Transmission Date: 20210114
  Serious: Yes (Other)
  Sender: FDA-Public Use
  Company Number: IE-MYLANLABS-2020M1088009

PATIENT
  Age: 88 Year
  Sex: Female

DRUGS (8)
  1. ERGOCALCIFEROL. [Concomitant]
     Active Substance: ERGOCALCIFEROL
     Indication: VITAMIN SUPPLEMENTATION
  2. COLECALCIFEROL [Suspect]
     Active Substance: CHOLECALCIFEROL
     Indication: VITAMIN SUPPLEMENTATION
  3. CINACALCET HYDROCHLORIDE. [Suspect]
     Active Substance: CINACALCET HYDROCHLORIDE
     Dosage: 60 MILLIGRAM, QD
  4. CINACALCET HYDROCHLORIDE. [Suspect]
     Active Substance: CINACALCET HYDROCHLORIDE
     Indication: HYPERPARATHYROIDISM PRIMARY
     Dosage: 30 MILLIGRAM, QD
     Route: 065
     Dates: start: 200705
  5. CINACALCET HYDROCHLORIDE. [Suspect]
     Active Substance: CINACALCET HYDROCHLORIDE
     Dosage: 30 MILLIGRAM, QD
     Route: 065
  6. COLECALCIFEROL [Suspect]
     Active Substance: CHOLECALCIFEROL
     Indication: VITAMIN D DEFICIENCY
     Dosage: 800 INTERNATIONAL UNIT, QD
     Route: 065
  7. CINACALCET HYDROCHLORIDE. [Suspect]
     Active Substance: CINACALCET HYDROCHLORIDE
     Dosage: 60 MILLIGRAM, QD
  8. ERGOCALCIFEROL. [Concomitant]
     Active Substance: ERGOCALCIFEROL
     Indication: VITAMIN D DEFICIENCY
     Dosage: 50000 INTERNATIONAL UNIT, QD (1.25 MG QD)
     Route: 065

REACTIONS (7)
  - Hypervitaminosis D [Unknown]
  - Hypercalcaemia [Recovered/Resolved]
  - Drug ineffective [Unknown]
  - Overdose [Unknown]
  - Blood parathyroid hormone increased [Unknown]
  - Product prescribing error [Unknown]
  - Chronic kidney disease [Unknown]

NARRATIVE: CASE EVENT DATE: 200705
